FAERS Safety Report 13399076 (Version 1)
Quarter: 2017Q2

REPORT INFORMATION
  Report Type: Other
  Country: DE (occurrence: DE)
  Receive Date: 20170404
  Receipt Date: 20170404
  Transmission Date: 20170830
  Serious: No
  Sender: FDA-Public Use
  Company Number: DE-LUPIN PHARMACEUTICALS INC.-2016-05720

PATIENT
  Age: 37 Year
  Sex: Female

DRUGS (9)
  1. SERTRALINE [Suspect]
     Active Substance: SERTRALINE HYDROCHLORIDE
     Indication: ANXIETY DISORDER
     Dosage: UNK UNK,UNK,
     Route: 048
     Dates: start: 20151006
  2. PREDNISONE. [Concomitant]
     Active Substance: PREDNISONE
     Indication: ASSISTED FERTILISATION
     Dosage: 5 MG,QD,
     Route: 048
  3. ORTHOMOL NATAL [Concomitant]
     Indication: PROPHYLAXIS OF NEURAL TUBE DEFECT
     Dosage: UNK UNK,UNK,
     Route: 048
     Dates: start: 20151006
  4. MERIESTRA [Suspect]
     Active Substance: ESTRADIOL VALERATE
     Indication: ASSISTED FERTILISATION
     Dosage: UNK UNK,UNK,
     Route: 048
  5. TAVOR (LORAZEPAM) [Concomitant]
     Active Substance: LORAZEPAM
     Indication: ANXIETY DISORDER
     Dosage: 1 [MG/D ]/ EIGHT TIMES BETWEEN WEEK 12 1/7 AND WEEK 33.
     Route: 048
     Dates: start: 20151230, end: 20160524
  6. PARACETAMOL 500 [Concomitant]
     Active Substance: ACETAMINOPHEN
     Indication: HEADACHE
     Dosage: 500 [MG/D ]/ 3 TIMES: WEEK 17, 18, AND 22
     Route: 048
  7. UTROGESTAN [Suspect]
     Active Substance: PROGESTERONE
     Indication: ASSISTED FERTILISATION
     Dosage: UNK UNK,UNK,
     Route: 065
  8. ADIRO [Concomitant]
     Active Substance: ASPIRIN
     Indication: ASSISTED FERTILISATION
     Dosage: 100 MG,QD,
     Route: 065
  9. CLEXANE [Concomitant]
     Active Substance: ENOXAPARIN SODIUM
     Indication: ASSISTED FERTILISATION
     Dosage: UNK UNK,UNK,
     Route: 058

REACTIONS (2)
  - Exposure during pregnancy [Unknown]
  - Vaginal haemorrhage [Unknown]
